FAERS Safety Report 8499032-6 (Version None)
Quarter: 2012Q3

REPORT INFORMATION
  Report Type: 
  Country: None (occurrence: None)
  Receive Date: 20120710
  Receipt Date: 20120702
  Transmission Date: 20120928
  Serious: Yes (Hospitalization, Other)
  Sender: FDA-Public Use
  Company Number: US-AMGEN-USASP2012040996

PATIENT
  Age: 79 Year
  Sex: Male

DRUGS (1)
  1. ENBREL [Suspect]
     Indication: PSORIATIC ARTHROPATHY
     Dosage: 25 MG, QWK
     Dates: start: 19990901

REACTIONS (9)
  - RENAL DISORDER [None]
  - ORAL CANDIDIASIS [None]
  - DERMATITIS DIAPER [None]
  - CONVULSION [None]
  - URINARY TRACT INFECTION [None]
  - PAIN [None]
  - VITAMIN B12 DEFICIENCY [None]
  - GRAND MAL CONVULSION [None]
  - DEMENTIA [None]
